FAERS Safety Report 13380839 (Version 2)
Quarter: 2017Q2

REPORT INFORMATION
  Report Type: Report from Study
  Country: US (occurrence: US)
  Receive Date: 20170329
  Receipt Date: 20170501
  Transmission Date: 20170830
  Serious: Yes (Hospitalization, Other)
  Sender: FDA-Public Use
  Company Number: US-AMGEN-USACT2017046357

PATIENT
  Age: 49 Year
  Sex: Male
  Weight: 82 kg

DRUGS (12)
  1. XIFAXAN [Concomitant]
     Active Substance: RIFAXIMIN
     Dosage: 550 MG, QD
     Route: 048
  2. ONDANSETRON [Concomitant]
     Active Substance: ONDANSETRON
     Dosage: 8 MG, UNK
     Route: 048
  3. JANUVIA [Concomitant]
     Active Substance: SITAGLIPTIN PHOSPHATE
     Dosage: 100 MG, UNK
  4. OXYCODONE [Concomitant]
     Active Substance: OXYCODONE
     Dosage: 5 MG, UNK
     Route: 048
  5. PROPRANOLOL [Concomitant]
     Active Substance: PROPRANOLOL HYDROCHLORIDE
     Dosage: 30 MG, UNK
  6. VITAMIN B [Concomitant]
     Active Substance: VITAMIN B
     Dosage: 100 UNK, UNK
     Route: 048
  7. LISINOPRIL. [Concomitant]
     Active Substance: LISINOPRIL
     Dosage: 2.5 MG, UNK
  8. PEGFILGRASTIM [Concomitant]
     Active Substance: PEGFILGRASTIM
     Dosage: 6 MG/0.6 ML, UNK
     Route: 058
  9. MEPHYTON [Concomitant]
     Active Substance: PHYTONADIONE
     Dosage: 5 MG, UNK
     Route: 048
  10. AMILORIDE [Concomitant]
     Active Substance: AMILORIDE
     Dosage: 5 MG, UNK
  11. ROMIPLOSTIM [Suspect]
     Active Substance: ROMIPLOSTIM
     Indication: THROMBOCYTOPENIA
     Dosage: 200 MUG, QWK
     Route: 058
     Dates: start: 20170110
  12. OMEPRAZOLE. [Concomitant]
     Active Substance: OMEPRAZOLE
     Dosage: 5 MG, UNK
     Route: 048

REACTIONS (6)
  - Hyperglycaemia [Unknown]
  - Ascites [Unknown]
  - Hepatic encephalopathy [Recovering/Resolving]
  - Oedema peripheral [Unknown]
  - Portal vein thrombosis [Unknown]
  - Leukopenia [Unknown]

NARRATIVE: CASE EVENT DATE: 20170322
